FAERS Safety Report 8270354-7 (Version None)
Quarter: 2012Q2

REPORT INFORMATION
  Report Type: 
  Country: None (occurrence: None)
  Receive Date: 20120410
  Receipt Date: 20120402
  Transmission Date: 20120825
  Serious: Yes (Other)
  Sender: FDA-Public Use
  Company Number: US-UCBSA-052357

PATIENT
  Age: 53 Year
  Sex: Female

DRUGS (4)
  1. PREDNISONE TAB [Concomitant]
     Dosage: UNKNOWN DOSE
  2. CIMZIA [Suspect]
     Indication: CROHN'S DISEASE
     Route: 058
     Dates: start: 20120127, end: 20120101
  3. CIMZIA [Suspect]
     Dates: start: 20120101, end: 20120402
  4. PREDNISONE TAB [Concomitant]
     Dosage: DOSE INCREASED

REACTIONS (5)
  - URTICARIA [None]
  - OEDEMA PERIPHERAL [None]
  - HERPES ZOSTER [None]
  - DEPRESSION [None]
  - PHARYNGEAL OEDEMA [None]
